FAERS Safety Report 7266644-7 (Version None)
Quarter: 2011Q1

REPORT INFORMATION
  Report Type: 
  Country: None (occurrence: None)
  Receive Date: 20110201
  Receipt Date: 20110124
  Transmission Date: 20110831
  Serious: Yes (Other)
  Sender: FDA-Public Use
  Company Number: US-ASTRAZENECA-2008UW15270

PATIENT
  Sex: Male
  Weight: 145.1 kg

DRUGS (8)
  1. LISINOPRIL [Concomitant]
  2. SULAR [Concomitant]
  3. METFORMIN [Concomitant]
  4. DIAZEPAM [Concomitant]
  5. SEROQUEL [Suspect]
     Indication: SCHIZOPHRENIA
     Dates: start: 20071201
  6. FLUOXETINE [Concomitant]
  7. SEROQUEL [Suspect]
     Indication: DEPRESSION
     Dates: start: 20071201
  8. NIASPAN [Concomitant]

REACTIONS (4)
  - BLOOD GLUCOSE INCREASED [None]
  - WHITE BLOOD CELL COUNT DECREASED [None]
  - SUICIDAL IDEATION [None]
  - DIABETES MELLITUS [None]
